FAERS Safety Report 15010542 (Version 1)
Quarter: 2018Q2

REPORT INFORMATION
  Report Type: Spontaneous
  Country: NL (occurrence: NL)
  Receive Date: 20180614
  Receipt Date: 20180614
  Transmission Date: 20180711
  Serious: Yes (Other)
  Sender: FDA-Public Use
  Company Number: NL-ASTRAZENECA-2018SE74903

PATIENT
  Age: 81 Year
  Sex: Male
  Weight: 79 kg

DRUGS (18)
  1. QUETIAPINE. [Suspect]
     Active Substance: QUETIAPINE
     Indication: DELIRIUM
     Dosage: 1X EVERY DAY 0.5 PIECE AND 1X PER DAY 1 PIECE AND WHEN NEEDED 1 PIECE EXTRA
     Route: 048
     Dates: start: 20180520, end: 20180523
  2. ASCORBIC ACID. [Concomitant]
     Active Substance: ASCORBIC ACID
  3. QUETIAPINE. [Suspect]
     Active Substance: QUETIAPINE
     Indication: DELIRIUM
     Dosage: 1X EVERY DAY 0.5 PIECE AND 1X PER DAY 1 PIECE AND WHEN NEEDED 1 PIECE EXTRA, 6.25 MILLIGRAMS DAILY
     Route: 048
     Dates: start: 20180520, end: 20180523
  4. LORAZEPAM. [Concomitant]
     Active Substance: LORAZEPAM
     Dosage: WHEN NEEDED 1DD1MG
     Route: 030
  5. QUETIAPINE. [Suspect]
     Active Substance: QUETIAPINE
     Indication: DELIRIUM
     Dosage: 1X EVERY DAY 0.5 PIECE AND 1X PER DAY 1 PIECE AND WHEN NEEDED 1 PIECE EXTRA, 12.5 MILLIGRAMS DAILY
     Route: 048
     Dates: start: 20180520, end: 20180523
  6. BUDESO/FORMO INHALATIEPOEDER [Concomitant]
  7. DUTASTERIDE. [Concomitant]
     Active Substance: DUTASTERIDE
  8. OMEPRAZOL [Concomitant]
     Active Substance: OMEPRAZOLE
  9. VITAMINE B COMPLEX FORTE [Concomitant]
  10. MOVICOLON [Concomitant]
     Active Substance: POLYETHYLENE GLYCOL 3350\POTASSIUM CHLORIDE\SODIUM BICARBONATE\SODIUM CHLORIDE
     Dosage: 1DD1 WHEN NEEDED
  11. ACETYLSALICYLZUUR [Concomitant]
     Active Substance: ASPIRIN
  12. TAMSULOSIN [Concomitant]
     Active Substance: TAMSULOSIN
  13. SALBUTAMOL/IPRATROPIUM [Concomitant]
     Active Substance: ALBUTEROL\IPRATROPIUM
     Dosage: 1/0.2MG/ML, ONE DOSAGE FORM FOUR TIMES DAILY
  14. HYDROXYCHLOROQUINE [Concomitant]
     Active Substance: HYDROXYCHLOROQUINE
  15. THIAMINE. [Concomitant]
     Active Substance: THIAMINE
  16. OXAZEPAM. [Concomitant]
     Active Substance: OXAZEPAM
     Dosage: 0.5-1-0.5-1 TABLET DAILY
  17. GLUCOSE [Concomitant]
     Active Substance: DEXTROSE
     Dosage: 1.5L/24 HOUR
  18. COLECALCIFEROL [Concomitant]
     Active Substance: CHOLECALCIFEROL

REACTIONS (1)
  - Torsade de pointes [Recovered/Resolved]

NARRATIVE: CASE EVENT DATE: 20180523
